FAERS Safety Report 8261875-1 (Version None)
Quarter: 2012Q2

REPORT INFORMATION
  Report Type: 
  Country: None (occurrence: None)
  Receive Date: 20120402
  Receipt Date: 20120323
  Transmission Date: 20120825
  Serious: Yes (Hospitalization, Other)
  Sender: FDA-Public Use
  Company Number: 2012SP016423

PATIENT
  Age: 53 Year
  Sex: Male

DRUGS (3)
  1. EFFEXOR [Suspect]
     Indication: PRODUCT USED FOR UNKNOWN INDICATION
     Dosage: 150 MCG, ONCE, PO
     Route: 048
     Dates: start: 20110804, end: 20110804
  2. REMERON [Suspect]
     Indication: PRODUCT USED FOR UNKNOWN INDICATION
     Dosage: 15 MG, ONCE, PO
     Route: 048
     Dates: start: 20110804, end: 20110804
  3. ABSINTH (ETHANOL) [Suspect]
     Indication: PRODUCT USED FOR UNKNOWN INDICATION
     Dosage: UNK
     Dates: start: 20110804, end: 20110804

REACTIONS (8)
  - CONFUSIONAL STATE [None]
  - AGITATION [None]
  - MYDRIASIS [None]
  - OXYGEN SATURATION DECREASED [None]
  - MULTIPLE DRUG OVERDOSE INTENTIONAL [None]
  - POISONING [None]
  - SOMNOLENCE [None]
  - DYSARTHRIA [None]
